FAERS Safety Report 6750548-X (Version None)
Quarter: 2010Q2

REPORT INFORMATION
  Report Type: 
  Country: None (occurrence: None)
  Receive Date: 20100528
  Receipt Date: 20100528
  Transmission Date: 20101027
  Serious: Yes (Hospitalization)
  Sender: FDA-Public Use
  Company Number: None

PATIENT
  Sex: Male
  Weight: 72 kg

DRUGS (8)
  1. ABRAXANE [Suspect]
     Indication: PANCREATIC CARCINOMA
     Dosage: 188 MG D1, D8 D15/CYCLE 042
     Dates: start: 20100128, end: 20100510
  2. VANDETANIB [Suspect]
     Indication: PANCREATIC CARCINOMA
     Dosage: 300 MG QD X 6 DAYS 047
     Dates: start: 20100128, end: 20100523
  3. METFORMIN [Concomitant]
  4. CREON [Concomitant]
  5. BENEFIBER [Concomitant]
  6. IMODIUM [Concomitant]
  7. VICODIN [Concomitant]
  8. PROZAC [Concomitant]

REACTIONS (2)
  - CONDITION AGGRAVATED [None]
  - PLEURAL EFFUSION [None]
